FAERS Safety Report 7438296-4 (Version None)
Quarter: 2011Q2

REPORT INFORMATION
  Report Type: 
  Country: None (occurrence: None)
  Receive Date: 20110419
  Receipt Date: 20110405
  Transmission Date: 20111010
  Serious: Yes (Other)
  Sender: FDA-Public Use
  Company Number: 030684

PATIENT
  Age: 30 Year
  Sex: Male

DRUGS (3)
  1. LAMOTRIGINE [Concomitant]
  2. VALPROIC ACID [Concomitant]
  3. LACOSAMIDE [Suspect]
     Dosage: (200 MG), (100 MG)

REACTIONS (1)
  - FATIGUE [None]
